FAERS Safety Report 9312388 (Version 1)
Quarter: 2013Q2

REPORT INFORMATION
  Report Type: Report from Study
  Country: BR (occurrence: BR)
  Receive Date: 20130528
  Receipt Date: 20130528
  Transmission Date: 20140414
  Serious: Yes (Other)
  Sender: FDA-Public Use
  Company Number: BR-ABBOTT-13P-020-1094662-00

PATIENT
  Age: 55 Year
  Sex: Female
  Weight: 50 kg

DRUGS (2)
  1. HUMIRA [Suspect]
     Indication: RHEUMATOID ARTHRITIS
     Route: 058
     Dates: start: 201202, end: 201211
  2. PREDNISONE [Concomitant]
     Indication: STEROID THERAPY
     Route: 048

REACTIONS (3)
  - Bone disorder [Recovering/Resolving]
  - Pain [Not Recovered/Not Resolved]
  - Gait disturbance [Unknown]
